FAERS Safety Report 18106212 (Version 3)
Quarter: 2020Q3

REPORT INFORMATION
  Report Type: Spontaneous
  Country: IT (occurrence: IT)
  Receive Date: 20200803
  Receipt Date: 20200831
  Transmission Date: 20201103
  Serious: Yes (Death, Other)
  Sender: FDA-Public Use
  Company Number: IT-MYLANLABS-2020M1068161

PATIENT
  Age: 7 Decade
  Sex: Female

DRUGS (23)
  1. IDELALISIB [Suspect]
     Active Substance: IDELALISIB
     Dosage: 300 MILLIGRAM, QD
     Route: 048
     Dates: start: 201510
  2. OFATUMUMAB [Suspect]
     Active Substance: OFATUMUMAB
     Dosage: 1 GRAM
     Route: 065
  3. CYTARABINE. [Suspect]
     Active Substance: CYTARABINE
     Indication: IMMUNOSUPPRESSANT DRUG THERAPY
     Dosage: UNK
     Route: 065
  4. IDELALISIB [Suspect]
     Active Substance: IDELALISIB
     Dosage: 150 MILLIGRAM, BID
     Route: 048
     Dates: start: 201510
  5. IDELALISIB [Suspect]
     Active Substance: IDELALISIB
     Dosage: UNK
     Route: 048
  6. ETOPOSIDE. [Suspect]
     Active Substance: ETOPOSIDE
     Indication: BONE MARROW CONDITIONING REGIMEN
     Dosage: UNK
     Route: 065
  7. IDELALISIB [Suspect]
     Active Substance: IDELALISIB
     Dosage: 300 MILLIGRAM, QD
     Route: 048
     Dates: start: 201609
  8. IDELALISIB [Suspect]
     Active Substance: IDELALISIB
     Dosage: 200 MILLIGRAM, QD; RESTARTED AT A REDUCED DOSE
     Route: 048
  9. CARMUSTINE. [Suspect]
     Active Substance: CARMUSTINE
     Indication: IMMUNOSUPPRESSANT DRUG THERAPY
     Dosage: UNK
     Route: 065
  10. MELPHALAN. [Suspect]
     Active Substance: MELPHALAN
     Indication: IMMUNOSUPPRESSANT DRUG THERAPY
     Dosage: UNK
     Route: 065
  11. IDELALISIB [Suspect]
     Active Substance: IDELALISIB
     Dosage: 150 MILLIGRAM, BID
     Route: 048
     Dates: end: 201609
  12. IDELALISIB [Suspect]
     Active Substance: IDELALISIB
     Dosage: 300 MILLIGRAM, QD; AS MONOTHERAPY
     Route: 048
     Dates: start: 201512
  13. OFATUMUMAB [Suspect]
     Active Substance: OFATUMUMAB
     Indication: CHRONIC LYMPHOCYTIC LEUKAEMIA
     Dosage: 300 MILLIGRAM
     Route: 065
  14. CYCLOPHOSPHAMIDE. [Suspect]
     Active Substance: CYCLOPHOSPHAMIDE
     Indication: CHRONIC LYMPHOCYTIC LEUKAEMIA
     Dosage: 250 MILLIGRAM/SQ. METER
     Route: 065
  15. RITUXIMAB. [Suspect]
     Active Substance: RITUXIMAB
     Indication: CHRONIC LYMPHOCYTIC LEUKAEMIA
     Dosage: 375 MILLIGRAM/SQ. METER (RECEIVED 5 COURSES OUT OF 8)
     Route: 065
     Dates: start: 201510, end: 201512
  16. CYTARABINE. [Suspect]
     Active Substance: CYTARABINE
     Indication: BONE MARROW CONDITIONING REGIMEN
  17. FLUDARABINE [Suspect]
     Active Substance: FLUDARABINE PHOSPHATE
     Indication: CHRONIC LYMPHOCYTIC LEUKAEMIA
     Dosage: 25 MILLIGRAM/SQ. METER
     Route: 065
  18. MELPHALAN. [Suspect]
     Active Substance: MELPHALAN
     Indication: BONE MARROW CONDITIONING REGIMEN
  19. CARMUSTINE. [Suspect]
     Active Substance: CARMUSTINE
     Indication: BONE MARROW CONDITIONING REGIMEN
  20. BENDAMUSTINE HYDROCHLORIDE. [Suspect]
     Active Substance: BENDAMUSTINE HYDROCHLORIDE
     Indication: CHRONIC LYMPHOCYTIC LEUKAEMIA
     Dosage: 70 MILLIGRAM/SQ. METER
     Route: 065
  21. MEFLOQUINE [Suspect]
     Active Substance: MEFLOQUINE
     Indication: PRODUCT USED FOR UNKNOWN INDICATION
     Dosage: UNK
     Route: 048
  22. MIRTAZAPINE. [Concomitant]
     Active Substance: MIRTAZAPINE
     Dosage: UNK
  23. IDELALISIB [Suspect]
     Active Substance: IDELALISIB
     Indication: CHRONIC LYMPHOCYTIC LEUKAEMIA
     Dosage: 100 MILLIGRAM BID (RESTARTED AT A REDUCED DOSE)
     Route: 048

REACTIONS (12)
  - Anosognosia [Unknown]
  - Disease progression [Unknown]
  - Immune reconstitution inflammatory syndrome [Unknown]
  - Progressive multifocal leukoencephalopathy [Fatal]
  - Hemianopia [Unknown]
  - Rash [Unknown]
  - Ataxia [Unknown]
  - Toxicity to various agents [Unknown]
  - Status epilepticus [Fatal]
  - Muscular weakness [Unknown]
  - Colitis [Recovered/Resolved]
  - JC virus infection [Unknown]

NARRATIVE: CASE EVENT DATE: 201609
